FAERS Safety Report 20685321 (Version 2)
Quarter: 2022Q2

REPORT INFORMATION
  Report Type: Report from Study
  Country: CA (occurrence: CA)
  Receive Date: 20220407
  Receipt Date: 20220509
  Transmission Date: 20220721
  Serious: Yes (Other)
  Sender: FDA-Public Use
  Company Number: CA-NOVARTISPH-NVSC2021CA051513

PATIENT
  Age: 52 Year
  Sex: Female

DRUGS (1)
  1. MAYZENT [Suspect]
     Active Substance: SIPONIMOD
     Indication: Secondary progressive multiple sclerosis
     Dosage: UNK
     Route: 048
     Dates: start: 20210222, end: 20220405

REACTIONS (4)
  - Retinal haemorrhage [Unknown]
  - Fatigue [Unknown]
  - Dry eye [Unknown]
  - Pain [Unknown]

NARRATIVE: CASE EVENT DATE: 20210222
